FAERS Safety Report 7753554-1 (Version None)
Quarter: 2011Q3

REPORT INFORMATION
  Report Type: 
  Country: None (occurrence: None)
  Receive Date: 20110915
  Receipt Date: 20110908
  Transmission Date: 20111222
  Serious: Yes (Hospitalization)
  Sender: FDA-Public Use
  Company Number: US-GLAXOSMITHKLINE-A0753926A

PATIENT
  Age: 65 Year
  Sex: Female
  Weight: 84.1 kg

DRUGS (7)
  1. AVANDIA [Suspect]
     Indication: DIABETES MELLITUS
     Dosage: 6MG PER DAY
     Route: 048
     Dates: start: 20060201, end: 20061225
  2. METFORMIN HYDROCHLORIDE [Concomitant]
  3. LEXAPRO [Concomitant]
  4. TYLENOL-500 [Concomitant]
  5. GLUCOPHAGE [Concomitant]
  6. AVANDAMET [Suspect]
     Indication: DIABETES MELLITUS
     Route: 048
     Dates: start: 20051103, end: 20060101
  7. PAXIL [Concomitant]

REACTIONS (4)
  - CORONARY ARTERY DISEASE [None]
  - CARDIAC FAILURE CONGESTIVE [None]
  - HYPERLIPIDAEMIA [None]
  - CARDIOMYOPATHY [None]
